FAERS Safety Report 9104239 (Version 1)
Quarter: 2013Q1

REPORT INFORMATION
  Report Type: Report from Study
  Country: CA (occurrence: CA)
  Receive Date: 20130219
  Receipt Date: 20130219
  Transmission Date: 20140127
  Serious: Yes (Other)
  Sender: FDA-Public Use
  Company Number: PHHY2013CA015341

PATIENT
  Age: 59 Year
  Sex: Female

DRUGS (7)
  1. ACLASTA [Suspect]
     Dosage: 5 MG/100 ML
     Route: 042
     Dates: start: 20091118
  2. ACLASTA [Suspect]
     Dosage: 5 MG/100 ML
     Route: 042
     Dates: start: 20101119
  3. ACLASTA [Suspect]
     Dosage: 5 MG/100 ML
     Route: 042
     Dates: start: 20111122
  4. ACLASTA [Suspect]
     Dosage: 5 MG/100 ML
     Route: 042
     Dates: start: 20121113
  5. PROLIA [Concomitant]
     Dosage: 60 (UNITS UNSPECIFIED) INJECTION TWICE A YEAR
     Dates: start: 20121113
  6. VITAMIN D [Concomitant]
     Dosage: 400 (UNITS UNSPECIFIED) BID
  7. CALCIUM [Concomitant]
     Dosage: 500 (UNITS UNSPECIFIED) BID

REACTIONS (3)
  - Ankle fracture [Unknown]
  - Myalgia [Unknown]
  - Pain [Unknown]
